FAERS Safety Report 12590999 (Version 1)
Quarter: 2016Q3

REPORT INFORMATION
  Report Type: Spontaneous
  Country: US (occurrence: US)
  Receive Date: 20160726
  Receipt Date: 20160726
  Transmission Date: 20161109
  Serious: No
  Sender: FDA-Public Use
  Company Number: US-UNITED THERAPEUTICS-UNT-2016-007359

PATIENT
  Sex: Female
  Weight: 62.13 kg

DRUGS (2)
  1. ORENITRAM [Suspect]
     Active Substance: TREPROSTINIL
     Dosage: UNK
  2. ORENITRAM [Suspect]
     Active Substance: TREPROSTINIL
     Indication: PULMONARY HYPERTENSION
     Dosage: 8 MG, TID
     Route: 048
     Dates: start: 20160121

REACTIONS (5)
  - Toothache [Unknown]
  - Headache [Unknown]
  - Flushing [Unknown]
  - Vomiting [Unknown]
  - Nausea [Unknown]
